FAERS Safety Report 9785448 (Version 2)
Quarter: 2014Q1

REPORT INFORMATION
  Report Type: Spontaneous
  Country: CH (occurrence: CH)
  Receive Date: 20131227
  Receipt Date: 20140101
  Transmission Date: 20141002
  Serious: Yes (Hospitalization, Other)
  Sender: FDA-Public Use
  Company Number: CH-009507513-1312CHE010276

PATIENT
  Age: 55 Year
  Sex: Male

DRUGS (5)
  1. REMERON [Suspect]
     Dosage: FREQUENCY: 39 DF AT ONCE
     Route: 048
     Dates: start: 20130207, end: 20130207
  2. LORAZEPAM [Suspect]
     Dosage: 37 DF AT ONCE
     Route: 048
     Dates: start: 20130207, end: 20130207
  3. QUETIAPINE FUMARATE [Suspect]
     Dosage: DOSE: 1.8-18 MG; FREQUENCY 6-60 DF AT ONE
     Route: 048
     Dates: start: 20130207, end: 20130207
  4. JANUMET [Suspect]
     Dosage: TOTAL DAILY DOSE: 1.25/25 G; FREQUENCY 25 DF AT ONE
     Route: 048
     Dates: start: 20130207, end: 20130207
  5. ESCITALOPRAM [Suspect]
     Dosage: 700 MG, UNK
     Route: 048
     Dates: start: 20130207, end: 20130207

REACTIONS (5)
  - Coma [Recovered/Resolved]
  - Suicide attempt [Recovered/Resolved]
  - Electrocardiogram QT prolonged [Recovered/Resolved]
  - Rhabdomyolysis [Recovering/Resolving]
  - Blood lactic acid increased [Recovered/Resolved]
